FAERS Safety Report 17319752 (Version 1)
Quarter: 2020Q1

REPORT INFORMATION
  Report Type: Report from Study
  Country: CA (occurrence: CA)
  Receive Date: 20200125
  Receipt Date: 20200125
  Transmission Date: 20200409
  Serious: Yes (Other)
  Sender: FDA-Public Use
  Company Number: CA-AMGEN-CANSL2019098212

PATIENT
  Age: 71 Year
  Sex: Female

DRUGS (1)
  1. REPATHA [Suspect]
     Active Substance: EVOLOCUMAB
     Indication: TYPE IIA HYPERLIPIDAEMIA
     Dosage: 140 MILLIGRAM, Q2WK
     Route: 065

REACTIONS (9)
  - Memory impairment [Recovering/Resolving]
  - Myalgia [Unknown]
  - Malaise [Unknown]
  - Glaucoma [Unknown]
  - Arthralgia [Unknown]
  - Pain [Recovering/Resolving]
  - Bone pain [Unknown]
  - Feeling abnormal [Recovering/Resolving]
  - Depression [Unknown]
